FAERS Safety Report 7417223-X (Version None)
Quarter: 2011Q2

REPORT INFORMATION
  Report Type: 
  Country: None (occurrence: None)
  Receive Date: 20110415
  Receipt Date: 20110413
  Transmission Date: 20111010
  Serious: Yes (Hospitalization, Other)
  Sender: FDA-Public Use
  Company Number: US-PFIZER INC-2010171620

PATIENT
  Sex: Male

DRUGS (1)
  1. CHANTIX [Suspect]
     Indication: SMOKING CESSATION THERAPY
     Dosage: STARTER PACK, THEN 1MG/DAY
     Dates: start: 20080301, end: 20081201

REACTIONS (5)
  - INTENTIONAL OVERDOSE [None]
  - DEPRESSION [None]
  - SUICIDE ATTEMPT [None]
  - HOSTILITY [None]
  - ANXIETY [None]
